FAERS Safety Report 7747532-6 (Version None)
Quarter: 2011Q3

REPORT INFORMATION
  Report Type: 
  Country: None (occurrence: None)
  Receive Date: 20110909
  Receipt Date: 20110323
  Transmission Date: 20111222
  Serious: Yes (Other)
  Sender: FDA-Public Use
  Company Number: 2011MA002249

PATIENT
  Age: 27 Year
  Sex: Female
  Weight: 161 kg

DRUGS (1)
  1. DEXTROMETHORPHAN HYDROBROMIDE AND QUINIDINE SULFATE CAPSULES 20MG/10MG [Suspect]
     Dosage: X1;PO
     Route: 048
     Dates: start: 20110220, end: 20110220

REACTIONS (4)
  - TREATMENT NONCOMPLIANCE [None]
  - ABORTION INDUCED [None]
  - MATERNAL EXPOSURE DURING PREGNANCY [None]
  - PREGNANCY [None]
